FAERS Safety Report 12556483 (Version 1)
Quarter: 2016Q3

REPORT INFORMATION
  Report Type: Spontaneous
  Country: US (occurrence: US)
  Receive Date: 20160714
  Receipt Date: 20160714
  Transmission Date: 20161109
  Serious: Yes (Other)
  Sender: FDA-Public Use
  Company Number: US-PFIZER INC-2016338240

PATIENT

DRUGS (2)
  1. PRISTIQ EXTENDED-RELEASE [Suspect]
     Active Substance: DESVENLAFAXINE SUCCINATE
     Dosage: 100 MG, UNK
  2. PRISTIQ EXTENDED-RELEASE [Suspect]
     Active Substance: DESVENLAFAXINE SUCCINATE
     Indication: DEPRESSION
     Dosage: 50 MG, UNK

REACTIONS (15)
  - Fall [Unknown]
  - Gastrointestinal disorder [Unknown]
  - Withdrawal syndrome [Unknown]
  - Paraesthesia [Unknown]
  - Eye pain [Unknown]
  - Headache [Unknown]
  - Gait disturbance [Unknown]
  - Nervous system disorder [Unknown]
  - Impaired driving ability [Unknown]
  - Nausea [Unknown]
  - Antisocial behaviour [Unknown]
  - Disturbance in attention [Unknown]
  - Activities of daily living impaired [Unknown]
  - Balance disorder [Unknown]
  - Vomiting [Unknown]
